FAERS Safety Report 8084582-7 (Version None)
Quarter: 2012Q1

REPORT INFORMATION
  Report Type: 
  Country: None (occurrence: None)
  Receive Date: 20120128
  Receipt Date: 20110322
  Transmission Date: 20120608
  Serious: No
  Sender: FDA-Public Use
  Company Number: US-ABBOTT-11P-163-0713462-00

PATIENT
  Sex: Male
  Weight: 104.42 kg

DRUGS (2)
  1. HUMIRA [Suspect]
     Indication: PSORIASIS
     Dosage: PENS
     Route: 058
     Dates: start: 20101201, end: 20110201
  2. HUMIRA [Suspect]
     Indication: PSORIATIC ARTHROPATHY
     Dosage: PRE-FILLED SYRINGES
     Route: 058
     Dates: start: 20110201

REACTIONS (2)
  - PSORIASIS [None]
  - DRUG INEFFECTIVE [None]
